FAERS Safety Report 4335182-3 (Version None)
Quarter: 2004Q2

REPORT INFORMATION
  Report Type: 
  Country: None (occurrence: None)
  Receive Date: 20040408
  Receipt Date: 20030520
  Transmission Date: 20050107
  Serious: Yes (Disabling, Other)
  Sender: FDA-Public Use
  Company Number: PHEH2003US07204

PATIENT
  Age: 62 Year
  Sex: Male
  Weight: 113 kg

DRUGS (13)
  1. ACCUPRIL [Concomitant]
  2. HYDROCHLOROTHIAZIDE [Concomitant]
  3. CEPHALEXIN [Concomitant]
  4. FLUOROMETHOLONE [Concomitant]
  5. PRED FORTE [Concomitant]
     Dates: start: 20020529
  6. CIPROFLOXACIN [Concomitant]
     Dates: start: 20020529
  7. COSOPT [Concomitant]
     Dates: start: 20021211
  8. QUIXIN [Concomitant]
     Dates: start: 20020725
  9. VOLTAREN [Suspect]
     Indication: MACULAR OEDEMA
     Dosage: UNK, QID
     Dates: start: 19980701, end: 19980727
  10. VOLTAREN [Suspect]
     Dates: start: 19980806, end: 19981215
  11. ALPHAGAN [Concomitant]
     Dates: start: 19981020
  12. FLUORESCEIN [Concomitant]
     Indication: ANGIOGRAM
     Dates: start: 19980623, end: 19980623
  13. FLUORESCEIN [Concomitant]
     Dates: start: 19980818, end: 19980818

REACTIONS (23)
  - ABNORMAL SENSATION IN EYE [None]
  - ANISOMETROPIA [None]
  - BLEPHARITIS [None]
  - BLINDNESS [None]
  - CATARACT OPERATION [None]
  - CORNEAL OPACITY [None]
  - CORNEAL OPERATION [None]
  - CORNEAL ULCER [None]
  - EYE OPERATION [None]
  - EYE PAIN [None]
  - EYE SWELLING [None]
  - GLAUCOMA [None]
  - INJURY CORNEAL [None]
  - INTRAOCULAR PRESSURE INCREASED [None]
  - KERATOCONJUNCTIVITIS SICCA [None]
  - LENS IMPLANT [None]
  - PHOTOPHOBIA [None]
  - PHOTOSENSITIVITY REACTION [None]
  - RETINAL DETACHMENT [None]
  - VISUAL ACUITY REDUCED [None]
  - VISUAL DISTURBANCE [None]
  - VITREOUS FLOATERS [None]
  - VITREOUS HAEMORRHAGE [None]
